FAERS Safety Report 5302171-1 (Version None)
Quarter: 2007Q2

REPORT INFORMATION
  Report Type: 
  Country: None (occurrence: None)
  Receive Date: 20070413
  Receipt Date: 20070330
  Transmission Date: 20071010
  Serious: Yes (Hospitalization)
  Sender: FDA-Public Use
  Company Number: S07-FRA-01415-01

PATIENT
  Sex: Female

DRUGS (3)
  1. CERVIDIL (DINORPROSTONE) [Suspect]
     Indication: CERVIX DISORDER
     Dosage: 10 MG ONCE VG
     Route: 067
     Dates: start: 20070209
  2. SYNTOCINON [Suspect]
     Indication: LABOUR INDUCTION
     Dates: start: 20070209
  3. SALBUTAMOL [Concomitant]

REACTIONS (9)
  - CONVULSION [None]
  - HEADACHE [None]
  - MENINGISM [None]
  - MUSCULOSKELETAL STIFFNESS [None]
  - NUCLEAR MAGNETIC RESONANCE IMAGING BRAIN ABNORMAL [None]
  - POSTICTAL STATE [None]
  - TETANY [None]
  - TONGUE BITING [None]
  - VOMITING [None]
